FAERS Safety Report 8846652 (Version 1)
Quarter: 2012Q4

REPORT INFORMATION
  Report Type: 
  Country: US (occurrence: US)
  Receive Date: 20121017
  Receipt Date: 20121017
  Transmission Date: 20130627
  Serious: Yes (Other)
  Sender: FDA-Public Use
  Company Number: CHPA2012US020956

PATIENT
  Age: 72 Year
  Sex: Male

DRUGS (2)
  1. THERAPEUTIC MINERAL ICE [Suspect]
     Indication: JOINT SWELLING
     Dosage: UNK, QD
     Route: 061
  2. IBUPROFEN [Concomitant]
     Indication: JOINT SWELLING
     Dosage: UNK, UNK

REACTIONS (4)
  - Gait disturbance [Recovered/Resolved]
  - Joint swelling [Unknown]
  - Therapeutic response unexpected [Unknown]
  - Off label use [Unknown]
